FAERS Safety Report 8053250-X (Version None)
Quarter: 2012Q1

REPORT INFORMATION
  Report Type: 
  Country: None (occurrence: None)
  Receive Date: 20120118
  Receipt Date: 20120113
  Transmission Date: 20120608
  Serious: Yes (Other)
  Sender: FDA-Public Use
  Company Number: VE-ROCHE-1030663

PATIENT
  Age: 24 Year
  Sex: Female

DRUGS (1)
  1. ISOTRETINOIN [Suspect]
     Indication: SKIN DISCOLOURATION
     Route: 048
     Dates: start: 20110401, end: 20111201

REACTIONS (1)
  - PREGNANCY [None]
